FAERS Safety Report 17767390 (Version 3)
Quarter: 2024Q1

REPORT INFORMATION
  Report Type: Spontaneous
  Country: CA (occurrence: None)
  Receive Date: 20200511
  Receipt Date: 20240322
  Transmission Date: 20240409
  Serious: Yes (Other)
  Sender: FDA-Public Use
  Company Number: 2017SF31373

PATIENT
  Age: 73 Year
  Sex: Female
  Weight: 80 kg

DRUGS (8)
  1. NEXIUM [Suspect]
     Active Substance: ESOMEPRAZOLE MAGNESIUM
     Indication: Product used for unknown indication
     Dosage: 40 MG, UNKNOWN
     Route: 048
     Dates: start: 2007
  2. NEXIUM [Suspect]
     Active Substance: ESOMEPRAZOLE MAGNESIUM
     Indication: Product used for unknown indication
     Dosage: 40 MG, UNKNOWN
     Route: 048
  3. ATORVASTATIN CALCIUM [Suspect]
     Active Substance: ATORVASTATIN CALCIUM
     Indication: Product used for unknown indication
     Dosage: 40 MG, UNKNOWN
     Route: 048
     Dates: start: 2015
  4. PENTASA [Concomitant]
     Active Substance: MESALAMINE
     Dosage: 1 G, UNKNOWN
     Route: 048
  5. PENTASA [Concomitant]
     Active Substance: MESALAMINE
     Dosage: 4 G, UNK
     Route: 065
  6. HYDROCHLOROTHIAZIDE\LOSARTAN [Concomitant]
     Active Substance: HYDROCHLOROTHIAZIDE\LOSARTAN
     Dosage: 100MG/25 MG
     Route: 048
     Dates: start: 201710
  7. METOPROLOL [Concomitant]
     Active Substance: METOPROLOL
     Dosage: 50 MG, DAILY
     Route: 048
     Dates: start: 2007
  8. INFLIXIMAB [Concomitant]
     Active Substance: INFLIXIMAB
     Dosage: 475 MG Q 0, 2, 6 WEEKS, THEN EVERY 8 WEEKS
     Route: 065
     Dates: start: 20171228

REACTIONS (4)
  - Lung neoplasm malignant [Unknown]
  - Renal cell carcinoma stage IV [Unknown]
  - Weight increased [Unknown]
  - Drug hypersensitivity [Unknown]

NARRATIVE: CASE EVENT DATE: 20171206
